FAERS Safety Report 7999433-6 (Version None)
Quarter: 2011Q4

REPORT INFORMATION
  Report Type: 
  Country: None (occurrence: None)
  Receive Date: 20111221
  Receipt Date: 20111208
  Transmission Date: 20120403
  Serious: Yes (Life-Threatening, Hospitalization, Other)
  Sender: FDA-Public Use
  Company Number: DE-PFIZER INC-2011169295

PATIENT
  Age: 75 Year
  Sex: Female

DRUGS (5)
  1. RAMIPRIL [Suspect]
     Dosage: 2.5 MG, 1X/DAY
     Route: 048
     Dates: start: 20110322, end: 20110504
  2. CANDESARTAN CILEXETIL AND HYDROCHLOROTHIAZIDE [Suspect]
     Dosage: 0.5 DF, 1X/DAY
     Route: 048
     Dates: start: 20090101, end: 20110101
  3. CANDESARTAN CILEXETIL AND HYDROCHLOROTHIAZIDE [Suspect]
     Dosage: 0.5 DF, 1X/DAY
     Dates: start: 20110502, end: 20110504
  4. CANDESARTAN CILEXETIL AND HYDROCHLOROTHIAZIDE [Suspect]
     Dosage: 1 DF, 1X/DAY
     Route: 048
     Dates: start: 20110101, end: 20110501
  5. CLARITHROMYCIN [Suspect]
     Indication: PNEUMONIA
     Dosage: 500 MG, 2X/DAY
     Route: 048
     Dates: start: 20110421, end: 20110426

REACTIONS (6)
  - HYPONATRAEMIA [None]
  - DIZZINESS [None]
  - ASTHENIA [None]
  - RENAL FAILURE ACUTE [None]
  - HYPOTENSION [None]
  - URINARY TRACT INFECTION [None]
